FAERS Safety Report 9204021 (Version 1)
Quarter: 2013Q2

REPORT INFORMATION
  Report Type: Spontaneous
  Country: AU (occurrence: AU)
  Receive Date: 20130402
  Receipt Date: 20130402
  Transmission Date: 20140414
  Serious: Yes (Hospitalization, Other)
  Sender: FDA-Public Use
  Company Number: AU-ELI_LILLY_AND_COMPANY-AU201303009057

PATIENT
  Age: 59 Year
  Sex: Female

DRUGS (7)
  1. OLANZAPINE [Suspect]
     Dosage: UNK, UNKNOWN
     Dates: end: 20120811
  2. CLOPINE [Concomitant]
     Indication: SCHIZOPHRENIA
     Dosage: 200 MG, UNK
     Route: 048
     Dates: start: 20120727, end: 20120811
  3. LACOSAMIDE [Concomitant]
     Dosage: 50 MG, BID
     Route: 048
  4. LAMOTRIGINE [Concomitant]
     Dosage: 200 MG, BID
     Route: 048
  5. VALPROATE [Concomitant]
     Dosage: 500 MG, BID
     Route: 048
  6. CHOLECALCIFEROL [Concomitant]
     Dosage: 2000 U, QD
     Route: 048
  7. CLONAZEPAM [Concomitant]
     Dosage: 0.25 MG, BID
     Route: 048

REACTIONS (5)
  - Myocarditis [Unknown]
  - Schizophrenia [Unknown]
  - Neuroleptic malignant syndrome [Unknown]
  - Drug interaction [Unknown]
  - Dizziness [Unknown]
